FAERS Safety Report 25188373 (Version 1)
Quarter: 2025Q2

REPORT INFORMATION
  Report Type: Spontaneous
  Country: ES (occurrence: ES)
  Receive Date: 20250411
  Receipt Date: 20250411
  Transmission Date: 20250717
  Serious: Yes (Other)
  Sender: ALK-ABELLO
  Company Number: ES-ALK-ABELLO A/S-2025AA001385

PATIENT

DRUGS (2)
  1. ACARIZAX [Suspect]
     Active Substance: DERMATOPHAGOIDES FARINAE\DERMATOPHAGOIDES PTERONYSSINUS
     Indication: Product used for unknown indication
  2. ACARIZAX [Suspect]
     Active Substance: DERMATOPHAGOIDES FARINAE\DERMATOPHAGOIDES PTERONYSSINUS

REACTIONS (10)
  - Asthmatic crisis [Unknown]
  - Condition aggravated [Unknown]
  - Laryngeal oedema [Unknown]
  - Sneezing [Unknown]
  - Aphonia [Unknown]
  - Erythema [Unknown]
  - Pruritus [Unknown]
  - Eye pruritus [Unknown]
  - Product packaging difficult to open [Unknown]
  - Product colour issue [Unknown]
